FAERS Safety Report 9710450 (Version 2)
Quarter: 2014Q2

REPORT INFORMATION
  Report Type: Spontaneous
  Country: US (occurrence: US)
  Receive Date: 20131126
  Receipt Date: 20140510
  Transmission Date: 20141212
  Serious: No
  Sender: FDA-Public Use
  Company Number: US-BRISTOL-MYERS SQUIBB COMPANY-19419720

PATIENT
  Age: 61 Year
  Sex: Female
  Weight: 116.1 kg

DRUGS (1)
  1. BYDUREON [Suspect]

REACTIONS (4)
  - Incorrect product storage [Unknown]
  - Hypoglycaemia [Unknown]
  - Injection site swelling [Unknown]
  - Weight fluctuation [Unknown]
